FAERS Safety Report 21887536 (Version 1)
Quarter: 2023Q1

REPORT INFORMATION
  Report Type: Spontaneous
  Country: US (occurrence: None)
  Receive Date: 20230120
  Receipt Date: 20230120
  Transmission Date: 20230418
  Serious: Yes (Other)
  Sender: FDA-Public Use
  Company Number: US-Unichem Pharmaceuticals (USA) Inc-UCM202301-000066

PATIENT
  Age: 17 Year
  Sex: Female
  Weight: 88.4 kg

DRUGS (14)
  1. CLONIDINE HYDROCHLORIDE [Suspect]
     Active Substance: CLONIDINE HYDROCHLORIDE
     Indication: Product used for unknown indication
     Dosage: UNKNOWN
  2. ARIPIPRAZOLE [Suspect]
     Active Substance: ARIPIPRAZOLE
     Indication: Bipolar disorder
     Dosage: 10 MG IN MORNING AND 10 MG IN NIGHT
  3. ARIPIPRAZOLE [Suspect]
     Active Substance: ARIPIPRAZOLE
  4. ARIPIPRAZOLE [Suspect]
     Active Substance: ARIPIPRAZOLE
     Dosage: DECREASED DOSE
  5. ARIPIPRAZOLE [Suspect]
     Active Substance: ARIPIPRAZOLE
  6. RISPERDAL [Suspect]
     Active Substance: RISPERIDONE
     Indication: Product used for unknown indication
     Dosage: UNKNOWN
  7. AMANTADINE [Concomitant]
     Active Substance: AMANTADINE
     Indication: Product used for unknown indication
     Dosage: UNKNOWN
  8. LITHIUM [Concomitant]
     Active Substance: LITHIUM
     Indication: Bipolar disorder
     Dosage: UNKNOWN
  9. HYDROXYZINE HYDROCHLORIDE [Concomitant]
     Active Substance: HYDROXYZINE HYDROCHLORIDE
     Indication: Anxiety
     Dosage: UNKNOWN
  10. SEROQUEL [Concomitant]
     Active Substance: QUETIAPINE FUMARATE
     Indication: Insomnia
     Dosage: UNKNOWN
  11. LAMOTRIGINE [Concomitant]
     Active Substance: LAMOTRIGINE
     Indication: Product used for unknown indication
     Dosage: UNKNOWN
  12. Nltrofurantoin [Concomitant]
     Indication: Product used for unknown indication
     Dosage: UNKNOWN
  13. IRON [Concomitant]
     Active Substance: IRON
     Indication: Product used for unknown indication
     Dosage: UNKNOWN
  14. LACTOBACILLUS ACIDOPHILUS [Concomitant]
     Active Substance: LACTOBACILLUS ACIDOPHILUS
     Indication: Abdominal discomfort
     Dosage: UNKNOWN

REACTIONS (5)
  - Hallucination [Unknown]
  - Urinary tract infection [Unknown]
  - Anaemia [Unknown]
  - Blood pressure decreased [Unknown]
  - Dizziness [Unknown]
